FAERS Safety Report 23837461 (Version 1)
Quarter: 2024Q2

REPORT INFORMATION
  Report Type: Spontaneous
  Country: US (occurrence: None)
  Receive Date: 20240508
  Receipt Date: 20240508
  Transmission Date: 20240715
  Serious: Yes (Hospitalization)
  Sender: FDA-Public Use
  Company Number: None

PATIENT
  Age: 77 Year
  Sex: Female

DRUGS (1)
  1. LENALIDOMIDE [Suspect]
     Active Substance: LENALIDOMIDE
     Indication: Amyloidosis
     Dosage: FREQUENCY : DAILY;?

REACTIONS (2)
  - Fall [None]
  - Pelvic fracture [None]

NARRATIVE: CASE EVENT DATE: 20240428
